FAERS Safety Report 9753179 (Version 1)
Quarter: 2013Q4

REPORT INFORMATION
  Report Type: Spontaneous
  Country: US (occurrence: US)
  Receive Date: 20131213
  Receipt Date: 20131213
  Transmission Date: 20140711
  Serious: No
  Sender: FDA-Public Use
  Company Number: US-GILEAD-2010-0026837

PATIENT
  Sex: Female
  Weight: 82.55 kg

DRUGS (11)
  1. LETAIRIS [Suspect]
     Indication: PULMONARY ARTERIAL HYPERTENSION
     Route: 048
     Dates: start: 20080222
  2. IRON [Concomitant]
  3. INFED [Concomitant]
  4. NIACIN [Concomitant]
  5. CLARITIN [Concomitant]
  6. PROVIGIL [Concomitant]
  7. VITAMIN D [Concomitant]
  8. ASPIRIN [Concomitant]
  9. PRILOSEC [Concomitant]
  10. OMEGA 3 FISH OIL [Concomitant]
  11. WOMENS MULTIVITAMIN [Concomitant]

REACTIONS (1)
  - Urinary tract infection [Unknown]
